FAERS Safety Report 6480151-0 (Version None)
Quarter: 2009Q4

REPORT INFORMATION
  Report Type: 
  Country: None (occurrence: None)
  Receive Date: 20091208
  Receipt Date: 20091201
  Transmission Date: 20100525
  Serious: Yes (Death, Hospitalization)
  Sender: FDA-Public Use
  Company Number: US-JNJFOC-20091100261

PATIENT
  Sex: Male
  Weight: 73.03 kg

DRUGS (49)
  1. PREZISTA [Suspect]
     Indication: HIV INFECTION
     Route: 048
  2. INTELENCE [Suspect]
     Indication: HIV INFECTION
     Route: 048
  3. NORVIR [Concomitant]
     Indication: HIV INFECTION
     Route: 048
  4. FUZEON [Concomitant]
     Indication: HIV INFECTION
     Route: 058
  5. SELZENTRY [Concomitant]
     Indication: HIV INFECTION
     Route: 048
  6. ISENTRESS [Concomitant]
     Indication: HIV INFECTION
  7. NEUPOGEN [Concomitant]
     Indication: ANAEMIA
     Route: 058
  8. FEOSOL [Concomitant]
     Indication: ANAEMIA
  9. EPOETIN ALFA [Concomitant]
     Indication: ANAEMIA
     Route: 058
  10. MEPRON [Concomitant]
     Route: 048
  11. DIFLUCAN [Concomitant]
  12. RIFABUTIN [Concomitant]
  13. LAMPRENE [Concomitant]
     Route: 048
  14. ETHIONAMIDE [Concomitant]
  15. NEXIUM [Concomitant]
  16. REGLAN [Concomitant]
  17. MARINOL [Concomitant]
     Route: 048
  18. MIRALAX [Concomitant]
     Indication: DIARRHOEA
  19. ONDANSETRON [Concomitant]
     Indication: NAUSEA
  20. FLOMAX [Concomitant]
  21. CIPROFLOXACIN [Concomitant]
  22. FINASTERIDE [Concomitant]
  23. EFFEXOR XR [Concomitant]
     Indication: DEPRESSION
  24. REMERON [Concomitant]
     Indication: DEPRESSION
  25. RITALIN [Concomitant]
     Indication: FATIGUE
  26. CALCIUM PHOSPHATE [Concomitant]
     Indication: BLOOD CALCIUM DECREASED
  27. ZEMPLAR [Concomitant]
     Indication: BLOOD CALCIUM DECREASED
  28. SLOW-MAG [Concomitant]
  29. POTASSIUM CHLORIDE [Concomitant]
  30. ANTARA (MICRONIZED) [Concomitant]
     Indication: BLOOD CHOLESTEROL
  31. ACTOS [Concomitant]
  32. VALCYTE [Concomitant]
     Indication: CYTOMEGALOVIRUS INFECTION
     Route: 048
  33. LEFLUNOMIDE [Concomitant]
     Indication: CYTOMEGALOVIRUS INFECTION
  34. VISTIDE [Concomitant]
     Indication: CYTOMEGALOVIRUS INFECTION
  35. ANDRODERM [Concomitant]
     Indication: MUSCLE ATROPHY
  36. HYDROCORTISONE [Concomitant]
     Indication: DIZZINESS
  37. PREDNISONE [Concomitant]
     Indication: DIZZINESS
  38. MIDODRINE HYDROCHLORIDE [Concomitant]
     Indication: DIZZINESS
  39. IV FLUIDS [Concomitant]
     Indication: DIZZINESS
  40. SEROSTIM [Concomitant]
     Indication: DIZZINESS
  41. PERCOCET [Concomitant]
     Indication: SCIATICA
     Route: 048
  42. GABAPENTIN [Concomitant]
     Indication: SCIATICA
  43. ALBUTEROL [Concomitant]
  44. ATROVENT [Concomitant]
  45. SPIRIVA [Concomitant]
  46. DEXTROMETHORPHAN + GUAIFENESIN [Concomitant]
     Indication: COUGH
     Route: 048
  47. NASACORT [Concomitant]
  48. AZELASTINE HCL [Concomitant]
  49. HYDROXYZINE [Concomitant]

REACTIONS (5)
  - BLOOD CALCIUM DECREASED [None]
  - BLOOD SODIUM DECREASED [None]
  - CARDIAC FAILURE CONGESTIVE [None]
  - NEPHROPATHY [None]
  - RENAL FAILURE ACUTE [None]
